FAERS Safety Report 5162509-5 (Version None)
Quarter: 2006Q4

REPORT INFORMATION
  Report Type: 
  Country: None (occurrence: None)
  Receive Date: 20061129
  Receipt Date: 20061129
  Transmission Date: 20070319
  Serious: No
  Sender: FDA-Public Use
  Company Number: None

PATIENT
  Age: 70 Year
  Sex: Female
  Weight: 68.0396 kg

DRUGS (1)
  1. BONIVA [Suspect]
     Indication: OSTEOPENIA
     Dosage: 1 PILL
     Dates: start: 20060701

REACTIONS (9)
  - ARTHRALGIA [None]
  - BACK PAIN [None]
  - COUGH [None]
  - DIZZINESS [None]
  - GROIN PAIN [None]
  - LYMPHADENOPATHY [None]
  - NAUSEA [None]
  - PAIN IN EXTREMITY [None]
  - THYROID NEOPLASM [None]
